FAERS Safety Report 8925393 (Version 1)
Quarter: 2012Q4

REPORT INFORMATION
  Report Type: Spontaneous
  Country: US (occurrence: None)
  Receive Date: 20121126
  Receipt Date: 20121126
  Transmission Date: 20130627
  Serious: Yes (Life-Threatening, Hospitalization)
  Sender: FDA-Public Use
  Company Number: None

PATIENT
  Age: 43 Year
  Sex: Female
  Weight: 94.8 kg

DRUGS (1)
  1. VITAMINS [Suspect]
     Indication: EYE SWELLING
     Route: 048
     Dates: start: 20121115, end: 20121116

REACTIONS (6)
  - Eye swelling [None]
  - Swollen tongue [None]
  - Pharyngeal oedema [None]
  - Pruritus generalised [None]
  - Dysphagia [None]
  - Feeling hot [None]
